FAERS Safety Report 4689758-4 (Version None)
Quarter: 2005Q2

REPORT INFORMATION
  Report Type: 
  Country: None (occurrence: None)
  Receive Date: 20050614
  Receipt Date: 20050603
  Transmission Date: 20051028
  Serious: Yes (Other)
  Sender: FDA-Public Use
  Company Number: NL-AMGEN-UK136452

PATIENT
  Sex: Female
  Weight: 93 kg

DRUGS (9)
  1. PALIFERMIN [Suspect]
     Indication: DRUG USE FOR UNKNOWN INDICATION
     Route: 042
     Dates: start: 20050519
  2. COTRIM [Concomitant]
     Route: 048
     Dates: start: 20050501
  3. PANTOPRAZOLE SODIUM [Concomitant]
     Route: 048
     Dates: start: 20050501
  4. AMPHOTERICIN B [Concomitant]
     Route: 048
     Dates: start: 20050530
  5. FRAXIPARIN [Concomitant]
     Route: 058
     Dates: start: 20050526
  6. FLUCONAZOLE [Concomitant]
     Route: 048
     Dates: start: 20050530
  7. CIPROXIN [Concomitant]
     Route: 048
     Dates: start: 20050530
  8. NEULASTA [Concomitant]
     Route: 058
     Dates: start: 20050531, end: 20050531
  9. CEFAZOLIN [Concomitant]
     Route: 042
     Dates: start: 20050601, end: 20050602

REACTIONS (9)
  - DYSGEUSIA [None]
  - ERYTHEMA [None]
  - OEDEMA PERIPHERAL [None]
  - ORAL MUCOSAL DISCOLOURATION [None]
  - ORAL PAIN [None]
  - PALMAR-PLANTAR ERYTHRODYSAESTHESIA SYNDROME [None]
  - PHARYNGOLARYNGEAL PAIN [None]
  - SWELLING FACE [None]
  - TONGUE COATED [None]
